FAERS Safety Report 17725935 (Version 1)
Quarter: 2020Q2

REPORT INFORMATION
  Report Type: Spontaneous
  Country: US (occurrence: US)
  Receive Date: 20200429
  Receipt Date: 20200429
  Transmission Date: 20200714
  Serious: No
  Sender: FDA-Public Use
  Company Number: US-SHIRE-US202013806

PATIENT
  Sex: Female
  Weight: 56.24 kg

DRUGS (1)
  1. GATTEX [Suspect]
     Active Substance: TEDUGLUTIDE\WATER
     Indication: SHORT-BOWEL SYNDROME
     Dosage: 0.281 MILLILITER, 1X/DAY:QD
     Route: 058
     Dates: start: 20200324, end: 20200420

REACTIONS (2)
  - Back pain [Recovering/Resolving]
  - Gastritis [Recovering/Resolving]
